FAERS Safety Report 16643099 (Version 1)
Quarter: 2019Q3

REPORT INFORMATION
  Report Type: Spontaneous
  Country: US (occurrence: US)
  Receive Date: 20190729
  Receipt Date: 20190729
  Transmission Date: 20191004
  Serious: No
  Sender: FDA-Public Use
  Company Number: US-MYLANLABS-2019M1067779

PATIENT
  Age: 64 Year
  Sex: Male

DRUGS (4)
  1. YUPELRI [Suspect]
     Active Substance: REVEFENACIN
     Indication: CHRONIC OBSTRUCTIVE PULMONARY DISEASE
     Dosage: UNK
     Route: 055
     Dates: start: 20190713, end: 20190714
  2. LEVALBUTEROL                       /01419301/ [Concomitant]
     Active Substance: LEVALBUTEROL
  3. INSULIN [Concomitant]
     Active Substance: INSULIN NOS
     Dosage: WITH PUMP
  4. YUPELRI [Suspect]
     Active Substance: REVEFENACIN
     Indication: ASTHMA

REACTIONS (8)
  - Bronchospasm [Unknown]
  - Dyspnoea [Recovered/Resolved]
  - Erythema [Unknown]
  - Fatigue [Recovered/Resolved]
  - Ocular hyperaemia [Unknown]
  - Cognitive disorder [Recovered/Resolved]
  - Balance disorder [Recovered/Resolved]
  - Asthenia [Recovered/Resolved]

NARRATIVE: CASE EVENT DATE: 20190713
